FAERS Safety Report 15035860 (Version 1)
Quarter: 2018Q2

REPORT INFORMATION
  Report Type: Report from Study
  Country: US (occurrence: US)
  Receive Date: 20180620
  Receipt Date: 20180620
  Transmission Date: 20180711
  Serious: Yes (Other)
  Sender: FDA-Public Use
  Company Number: US-UCBSA-2018024197

PATIENT
  Age: 20 Year

DRUGS (1)
  1. LEVETIRACETAM. [Suspect]
     Active Substance: LEVETIRACETAM
     Indication: EPILEPSY
     Dosage: 2 750 MG PILLS A DAY

REACTIONS (3)
  - Seizure [Unknown]
  - Treatment failure [Unknown]
  - Adverse drug reaction [Unknown]
